FAERS Safety Report 10032385 (Version 3)
Quarter: 2014Q2

REPORT INFORMATION
  Report Type: Spontaneous
  Country: FR (occurrence: FR)
  Receive Date: 20140324
  Receipt Date: 20140515
  Transmission Date: 20141212
  Serious: Yes (Other)
  Sender: FDA-Public Use
  Company Number: FR-009507513-1403FRA002030

PATIENT
  Age: 3 Year
  Sex: Female
  Weight: 15 kg

DRUGS (5)
  1. CELESTENE [Suspect]
     Indication: EAR INFECTION
     Dosage: 150 DF, QD
     Route: 045
     Dates: start: 20140206, end: 20140210
  2. CELESTENE [Suspect]
     Dosage: 100 DF, QD
     Route: 045
  3. CELESTENE [Suspect]
     Dosage: 50 DF, QD
     Route: 045
     Dates: end: 20140216
  4. NASONEX [Concomitant]
  5. CLAMOXYL [Concomitant]
     Indication: EAR INFECTION
     Dosage: 250 MG, TID
     Dates: start: 20140206, end: 20140214

REACTIONS (4)
  - Insomnia [Recovered/Resolved]
  - Abnormal behaviour [Recovered/Resolved]
  - Agitation [Recovered/Resolved]
  - Dyspepsia [Not Recovered/Not Resolved]
